FAERS Safety Report 23629335 (Version 1)
Quarter: 2024Q1

REPORT INFORMATION
  Report Type: Spontaneous
  Country: US (occurrence: US)
  Receive Date: 20240313
  Receipt Date: 20240313
  Transmission Date: 20240410
  Serious: Yes (Other)
  Sender: FDA-Public Use
  Company Number: US-VISTAPHARM-2023-US-013657

PATIENT
  Age: 29 Year
  Sex: Female
  Weight: 94.4 kg

DRUGS (5)
  1. ASPIRIN [Suspect]
     Active Substance: ASPIRIN
     Dosage: 81 MG DAILY
     Dates: start: 2011
  2. TACROLIMUS [Suspect]
     Active Substance: TACROLIMUS
     Dosage: 1.5MG TWICE A DAY
     Dates: start: 20110521
  3. AMLODIPINE [Concomitant]
     Active Substance: AMLODIPINE BESYLATE
     Dosage: 10MG DAILY
  4. VITAMIN D [Concomitant]
     Active Substance: VITAMIN D NOS
     Dosage: 4000 UNITS DAILY
  5. MYCOPHENOLATE MOFETIL [Suspect]
     Active Substance: MYCOPHENOLATE MOFETIL
     Indication: Renal transplant
     Dosage: 750 MG BID
     Route: 048
     Dates: start: 20110519

REACTIONS (2)
  - Exposure during pregnancy [Recovered/Resolved]
  - Abortion spontaneous [Unknown]

NARRATIVE: CASE EVENT DATE: 20230515
